FAERS Safety Report 7540169-3 (Version None)
Quarter: 2011Q2

REPORT INFORMATION
  Report Type: 
  Country: None (occurrence: None)
  Receive Date: 20110610
  Receipt Date: 20110527
  Transmission Date: 20111010
  Serious: Yes (Life-Threatening, Hospitalization)
  Sender: FDA-Public Use
  Company Number: DK-JNJFOC-20080403875

PATIENT
  Sex: Male
  Weight: 71.4 kg

DRUGS (10)
  1. METHOTREXATE [Concomitant]
     Route: 048
     Dates: start: 20050715
  2. REMICADE [Suspect]
     Indication: ANKYLOSING SPONDYLITIS
     Dosage: DOSE  = 6 MG/KG AND VARIED DOSE (NOT OTHERWISE SPECIFIED).
     Route: 042
     Dates: start: 20060224, end: 20080204
  3. METHOTREXATE [Concomitant]
     Route: 048
     Dates: start: 20080101
  4. PREDNISOLONE [Concomitant]
     Dates: start: 20051118, end: 20060224
  5. ENBREL [Suspect]
     Indication: ANKYLOSING SPONDYLITIS
     Route: 058
     Dates: start: 20050811, end: 20080207
  6. TRAMADOL HCL [Concomitant]
     Dosage: STARTED BEFORE 2006.
     Route: 048
  7. HUMIRA [Suspect]
     Indication: ANKYLOSING SPONDYLITIS
     Route: 058
     Dates: start: 20051128, end: 20060224
  8. METHOTREXATE [Concomitant]
     Dosage: STARTED BEFORE 2006.  ^JUST NOW STARTED AGAIN.^
     Route: 048
  9. REMICADE [Suspect]
     Dosage: 23 TREATMENTS
     Route: 042
     Dates: start: 20080204, end: 20080226
  10. REMICADE [Suspect]
     Route: 042
     Dates: start: 20060224, end: 20060225

REACTIONS (1)
  - PULMONARY TUBERCULOSIS [None]
